FAERS Safety Report 23231647 (Version 1)
Quarter: 2023Q4

REPORT INFORMATION
  Report Type: Spontaneous
  Country: ZA (occurrence: ZA)
  Receive Date: 20231127
  Receipt Date: 20231127
  Transmission Date: 20240110
  Serious: Yes (Hospitalization, Other)
  Sender: FDA-Public Use
  Company Number: ZA-002147023-NVSC2023ZA247059

PATIENT

DRUGS (1)
  1. RUXOLITINIB [Suspect]
     Active Substance: RUXOLITINIB
     Indication: Mantle cell lymphoma
     Dosage: UNK
     Route: 065

REACTIONS (6)
  - Graft versus host disease in lung [Unknown]
  - Gait disturbance [Unknown]
  - Infection [Unknown]
  - Pneumonia [Unknown]
  - Dyspnoea [Unknown]
  - Product use in unapproved indication [Unknown]
